FAERS Safety Report 12109081 (Version 2)
Quarter: 2016Q1

REPORT INFORMATION
  Report Type: Report from Study
  Country: MX (occurrence: MX)
  Receive Date: 20160224
  Receipt Date: 20160304
  Transmission Date: 20160526
  Serious: Yes (Other)
  Sender: FDA-Public Use
  Company Number: PHHY2016MX022958

PATIENT
  Sex: Female
  Weight: 53 kg

DRUGS (5)
  1. ALVESCO [Concomitant]
     Active Substance: CICLESONIDE
     Indication: EMPHYSEMA
     Dosage: 300 MG, QHS
     Route: 055
  2. OXYGEN. [Concomitant]
     Active Substance: OXYGEN
     Indication: PRODUCT USED FOR UNKNOWN INDICATION
     Route: 065
  3. ONBREZ [Suspect]
     Active Substance: INDACATEROL
     Indication: EMPHYSEMA
     Dosage: 3 DF, QD (300 MCG)
     Route: 055
     Dates: start: 2013
  4. ONBREZ [Suspect]
     Active Substance: INDACATEROL
     Dosage: 2 DF, (300 MCG)
     Route: 055
  5. ONBREZ [Suspect]
     Active Substance: INDACATEROL
     Dosage: 1 DF, QD (300 MCG)
     Route: 055

REACTIONS (8)
  - Arthralgia [Not Recovered/Not Resolved]
  - Skin discolouration [Not Recovered/Not Resolved]
  - Off label use [Recovered/Resolved]
  - Blood pressure increased [Not Recovered/Not Resolved]
  - Pneumonia [Unknown]
  - Abdominal pain [Recovering/Resolving]
  - Tongue dry [Not Recovered/Not Resolved]
  - Dyspepsia [Not Recovered/Not Resolved]

NARRATIVE: CASE EVENT DATE: 2013
